FAERS Safety Report 6898775-5 (Version None)
Quarter: 2010Q3

REPORT INFORMATION
  Report Type: 
  Country: None (occurrence: None)
  Receive Date: 20100802
  Receipt Date: 20071130
  Transmission Date: 20110219
  Serious: Yes (Other)
  Sender: FDA-Public Use
  Company Number: US-PFIZER INC-2007086250

PATIENT
  Sex: Female

DRUGS (1)
  1. LYRICA [Suspect]
     Dates: start: 20070901

REACTIONS (4)
  - BALANCE DISORDER [None]
  - DIZZINESS [None]
  - DYSARTHRIA [None]
  - HEADACHE [None]
